FAERS Safety Report 7384068-9 (Version None)
Quarter: 2011Q1

REPORT INFORMATION
  Report Type: 
  Country: None (occurrence: None)
  Receive Date: 20110330
  Receipt Date: 20110324
  Transmission Date: 20110831
  Serious: Yes (Hospitalization)
  Sender: FDA-Public Use
  Company Number: A0772828A

PATIENT
  Age: 47 Year
  Sex: Male
  Weight: 79.5 kg

DRUGS (2)
  1. AVANDIA [Suspect]
     Indication: DIABETES MELLITUS
     Dosage: 4MG PER DAY
     Route: 048
     Dates: start: 20030113, end: 20070801
  2. FLOMAX [Concomitant]

REACTIONS (3)
  - MYOCARDIAL INFARCTION [None]
  - VISUAL IMPAIRMENT [None]
  - HYPERTENSION [None]
